FAERS Safety Report 6372914-7 (Version None)
Quarter: 2009Q3

REPORT INFORMATION
  Report Type: 
  Country: None (occurrence: None)
  Receive Date: 20090924
  Receipt Date: 20090417
  Transmission Date: 20100115
  Serious: Yes (Other)
  Sender: FDA-Public Use
  Company Number: US-ASTRAZENECA-2008UW26511

PATIENT
  Age: 7741 Day
  Sex: Male
  Weight: 117.9 kg

DRUGS (9)
  1. SEROQUEL [Suspect]
     Indication: SCHIZOPHRENIA
     Dosage: 200 TO 400 MG
     Route: 048
     Dates: start: 20050901, end: 20070701
  2. ABILIFY [Concomitant]
     Dates: start: 20070801, end: 20080101
  3. CLOZARIL [Concomitant]
     Dosage: 50 TO 100 MG
     Dates: start: 20020901, end: 20021001
  4. GEODON [Concomitant]
     Dates: start: 20040501, end: 20040701
  5. HALDOL [Concomitant]
     Dates: start: 20020901, end: 20080101
  6. RISPERDAL [Concomitant]
     Dosage: 1 TO 4 MG
     Dates: start: 20020901, end: 20040901
  7. DEPAKOTE [Concomitant]
     Dates: start: 20050101
  8. BENZTROPINE MESYLATE [Concomitant]
     Dates: start: 20050101
  9. TOPAMAX [Concomitant]
     Dates: start: 20050101

REACTIONS (3)
  - ALANINE AMINOTRANSFERASE INCREASED [None]
  - TARDIVE DYSKINESIA [None]
  - TYPE 2 DIABETES MELLITUS [None]
